FAERS Safety Report 10055002 (Version 5)
Quarter: 2014Q4

REPORT INFORMATION
  Report Type: Report from Study
  Country: FR (occurrence: FR)
  Receive Date: 20140402
  Receipt Date: 20141009
  Transmission Date: 20150528
  Serious: Yes (Life-Threatening, Hospitalization, Other)
  Sender: FDA-Public Use
  Company Number: PHHY2010FR80459

PATIENT
  Age: 48 Year
  Sex: Female
  Weight: 40 kg

DRUGS (25)
  1. LASILIX [Concomitant]
     Active Substance: FUROSEMIDE
     Dosage: 40 MG
  2. CORDARONE [Concomitant]
     Active Substance: AMIODARONE HYDROCHLORIDE
     Indication: PRODUCT USED FOR UNKNOWN INDICATION
     Dosage: 200 MG, QD
     Route: 065
     Dates: start: 201011
  3. DESFERAL [Concomitant]
     Active Substance: DEFEROXAMINE MESYLATE
     Indication: PRODUCT USED FOR UNKNOWN INDICATION
     Dosage: 2 G, 2 G/ DAY 3 DAYS WEEKLY
     Route: 065
  4. ICL670A [Suspect]
     Active Substance: DEFERASIROX
     Dosage: 1000 MG, DAILY (25 MG/KG
     Dates: start: 20120625
  5. DETENSIEL [Concomitant]
     Active Substance: BISOPROLOL FUMARATE
     Indication: PRODUCT USED FOR UNKNOWN INDICATION
     Dosage: 10 MG, QD
     Route: 065
     Dates: start: 200811
  6. MAGNE B6 [Concomitant]
     Active Substance: MAGNESIUM\PYRIDOXINE
     Indication: PRODUCT USED FOR UNKNOWN INDICATION
     Dosage: 2 DF, BID
     Route: 065
  7. LEVOTHYROX [Concomitant]
     Active Substance: LEVOTHYROXINE
     Indication: HYPOTHYROIDISM
     Dosage: 25 UG, QD
     Route: 065
  8. PREVISCAN [Concomitant]
     Active Substance: FLUINDIONE
     Indication: PRODUCT USED FOR UNKNOWN INDICATION
     Dosage: 20 MG, QOD
     Route: 065
     Dates: start: 200811
  9. ALDACTONE [Concomitant]
     Active Substance: SPIRONOLACTONE
     Indication: PRODUCT USED FOR UNKNOWN INDICATION
     Dosage: 25 MG, QD
     Route: 065
  10. ICL670A [Suspect]
     Active Substance: DEFERASIROX
     Indication: HAEMOCHROMATOSIS
     Dosage: 645 MG, DAILY (15 MG/KG
     Dates: start: 20100412
  11. SPECIAFOLDINE [Concomitant]
     Active Substance: FOLIC ACID
     Indication: PRODUCT USED FOR UNKNOWN INDICATION
     Dosage: 5 MG, QD
     Route: 065
     Dates: start: 2008
  12. CORDARONE [Concomitant]
     Active Substance: AMIODARONE HYDROCHLORIDE
     Dosage: 100 MG, QD
  13. LEVOTHYROX [Concomitant]
     Active Substance: LEVOTHYROXINE
     Dosage: 75 UG, QD
  14. ICL670A [Suspect]
     Active Substance: DEFERASIROX
     Dosage: 1000 MG, DAILY (25 MG/KG
     Dates: start: 20101006
  15. ICL670A [Suspect]
     Active Substance: DEFERASIROX
     Dosage: 1250 MG, DAILY (31 MG/KG
     Dates: start: 20110330
  16. COVERSYL [Concomitant]
     Active Substance: PERINDOPRIL
     Indication: PRODUCT USED FOR UNKNOWN INDICATION
     Dosage: 5 MG, QD
     Route: 065
     Dates: start: 200811
  17. LASILIX [Concomitant]
     Active Substance: FUROSEMIDE
     Indication: PRODUCT USED FOR UNKNOWN INDICATION
     Dosage: 20 MG, UNK
     Route: 065
     Dates: start: 200811
  18. ZYLORIC [Concomitant]
     Active Substance: ALLOPURINOL
     Indication: PRODUCT USED FOR UNKNOWN INDICATION
     Dosage: 100 MG, QD
     Route: 065
  19. COUMADIN [Concomitant]
     Active Substance: WARFARIN SODIUM
     Indication: PRODUCT USED FOR UNKNOWN INDICATION
     Dosage: 2 MG, QD
     Route: 065
  20. COVERSYL [Concomitant]
     Active Substance: PERINDOPRIL
     Dosage: 15 MG, PER DAY
  21. LASILIX [Concomitant]
     Active Substance: FUROSEMIDE
     Dosage: 80 MG
  22. LASILIX [Concomitant]
     Active Substance: FUROSEMIDE
     Dosage: 60 MG, PER DAY
  23. ICL670A [Suspect]
     Active Substance: DEFERASIROX
     Indication: IRON OVERLOAD
     Dosage: 500 MG, DAILY (12 MG/KG)
     Route: 048
     Dates: start: 20070116
  24. KALEORID [Concomitant]
     Active Substance: POTASSIUM CHLORIDE
     Indication: PRODUCT USED FOR UNKNOWN INDICATION
     Route: 065
     Dates: start: 200811
  25. LEVOTHYROX [Concomitant]
     Active Substance: LEVOTHYROXINE
     Dosage: 150 UG, QD

REACTIONS (16)
  - Dyspnoea [Recovering/Resolving]
  - Right ventricular dysfunction [Recovered/Resolved with Sequelae]
  - Pericardial effusion [Recovered/Resolved]
  - Pulmonary hypertension [Unknown]
  - Viral infection [Unknown]
  - Atrial tachycardia [Recovered/Resolved with Sequelae]
  - Cardiac failure [Recovered/Resolved]
  - Hepatomegaly [Unknown]
  - Respiratory distress [Recovered/Resolved with Sequelae]
  - Bronchitis [Unknown]
  - Atrial fibrillation [Recovering/Resolving]
  - Hypercapnia [Recovered/Resolved with Sequelae]
  - Hepatojugular reflux [Unknown]
  - Palpitations [Unknown]
  - Pleural effusion [Recovered/Resolved with Sequelae]
  - Pulmonary embolism [Recovered/Resolved]

NARRATIVE: CASE EVENT DATE: 2008
